FAERS Safety Report 17491517 (Version 2)
Quarter: 2020Q1

REPORT INFORMATION
  Report Type: Spontaneous
  Country: GB (occurrence: GB)
  Receive Date: 20200303
  Receipt Date: 20200312
  Transmission Date: 20200409
  Serious: No
  Sender: FDA-Public Use
  Company Number: GB-MALLINCKRODT-T202001014

PATIENT
  Sex: Male
  Weight: 77 kg

DRUGS (2)
  1. HEPARIN [Concomitant]
     Active Substance: HEPARIN SODIUM
     Indication: ANTICOAGULANT THERAPY
     Dosage: UNK
     Route: 065
  2. UVADEX [Suspect]
     Active Substance: METHOXSALEN
     Indication: IMMUNE-MEDIATED ADVERSE REACTION
     Dosage: UNK, (EXTRACORPOREAL)
     Route: 050

REACTIONS (3)
  - Presyncope [Recovered/Resolved]
  - Skin discolouration [Recovered/Resolved]
  - Product use in unapproved indication [Unknown]

NARRATIVE: CASE EVENT DATE: 20170713
